FAERS Safety Report 18315518 (Version 3)
Quarter: 2020Q4

REPORT INFORMATION
  Report Type: Spontaneous
  Country: US (occurrence: US)
  Receive Date: 20200926
  Receipt Date: 20201112
  Transmission Date: 20210113
  Serious: Yes (Hospitalization, Other)
  Sender: FDA-Public Use
  Company Number: US-SERVIER-S20009295

PATIENT

DRUGS (11)
  1. TN UNSPECIFIED [Concomitant]
     Indication: ACUTE LYMPHOCYTIC LEUKAEMIA
     Dosage: UNK
     Route: 037
     Dates: start: 20200723, end: 20200723
  2. TN UNSPECIFIED [Concomitant]
     Dosage: UNK
     Route: 037
     Dates: start: 20200806, end: 20200806
  3. TN UNSPECIFIED [Concomitant]
     Dosage: UNK
     Route: 037
     Dates: start: 20200806, end: 20200806
  4. TN UNSPECIFIED [Concomitant]
     Indication: ACUTE LYMPHOCYTIC LEUKAEMIA
     Dosage: UNK
     Route: 037
     Dates: start: 20200723
  5. TN UNSPECIFIED [Concomitant]
     Indication: ACUTE LYMPHOCYTIC LEUKAEMIA
     Dosage: UNK
     Route: 037
     Dates: start: 20200730, end: 20200730
  6. TN UNSPECIFIED [Concomitant]
     Dosage: UNK
     Route: 037
     Dates: start: 20200806, end: 20200806
  7. TN UNSPECIFIED [Concomitant]
     Dosage: UNK
     Route: 037
     Dates: start: 20200730, end: 20200730
  8. ONCASPAR [Suspect]
     Active Substance: PEGASPARGASE
     Indication: ACUTE LYMPHOCYTIC LEUKAEMIA
     Dosage: 3750 IU
     Route: 042
     Dates: start: 20200727
  9. TN UNSPECIFIED [Concomitant]
     Indication: ACUTE LYMPHOCYTIC LEUKAEMIA
     Dosage: UNK
     Route: 037
     Dates: start: 20200723, end: 20200723
  10. TN UNSPECIFIED [Concomitant]
     Dosage: UNK
     Route: 037
     Dates: start: 20200730, end: 20200730
  11. TN UNSPECIFIED [Concomitant]
     Indication: ACUTE LYMPHOCYTIC LEUKAEMIA
     Dosage: UNK UNK, BID
     Route: 048
     Dates: start: 20200723

REACTIONS (1)
  - Deep vein thrombosis [Recovering/Resolving]

NARRATIVE: CASE EVENT DATE: 20200813
